FAERS Safety Report 19024579 (Version 2)
Quarter: 2021Q2

REPORT INFORMATION
  Report Type: Report from Study
  Country: US (occurrence: US)
  Receive Date: 20210318
  Receipt Date: 20210501
  Transmission Date: 20210717
  Serious: Yes (Other)
  Sender: FDA-Public Use
  Company Number: NVSC2021US053595

PATIENT
  Sex: Male

DRUGS (2)
  1. COSENTYX [Suspect]
     Active Substance: SECUKINUMAB
     Indication: PSORIATIC ARTHROPATHY
     Dosage: 300 MG, QMO (BENEATH THE SKIN, USUALLY VIA INJECTION)
     Route: 058
  2. COSENTYX [Suspect]
     Active Substance: SECUKINUMAB
     Dosage: 1 DF, QMO (EVERY 4 WEEKS)
     Route: 065
     Dates: start: 2020

REACTIONS (4)
  - Psoriatic arthropathy [Unknown]
  - Arthralgia [Unknown]
  - Fatigue [Unknown]
  - Incorrect dose administered [Unknown]
